FAERS Safety Report 7740527-8 (Version None)
Quarter: 2011Q3

REPORT INFORMATION
  Report Type: 
  Country: None (occurrence: None)
  Receive Date: 20110909
  Receipt Date: 20110907
  Transmission Date: 20111222
  Serious: Yes (Life-Threatening, Hospitalization, Other)
  Sender: FDA-Public Use
  Company Number: US-PFIZER INC-2011175153

PATIENT
  Sex: Male
  Weight: 55 kg

DRUGS (7)
  1. DILAUDID [Suspect]
     Indication: PAIN
     Dosage: 84 MG, AS NEEDED
  2. DIAZEPAM [Suspect]
     Dosage: 410 MG, 4X/DAY
  3. HYDROCODONE [Concomitant]
     Dosage: UNK
  4. DIAZEPAM [Suspect]
     Dosage: DOSE DOUBLED
  5. VALIUM [Suspect]
     Dosage: 80 MG, UNK
  6. XANAX [Suspect]
     Dosage: UNK
  7. XANAX [Suspect]
     Indication: ANXIETY
     Dosage: 1 MG, 5X/DAY

REACTIONS (9)
  - MENTAL DISORDER [None]
  - WEIGHT INCREASED [None]
  - FATIGUE [None]
  - EYE MOVEMENT DISORDER [None]
  - SCHIZOPHRENIA [None]
  - MYOCARDIAL INFARCTION [None]
  - INSOMNIA [None]
  - TACHYCARDIA [None]
  - MALAISE [None]
